FAERS Safety Report 5747035-4 (Version None)
Quarter: 2008Q2

REPORT INFORMATION
  Report Type: 
  Country: None (occurrence: None)
  Receive Date: 20080522
  Receipt Date: 20080514
  Transmission Date: 20081010
  Serious: Yes (Hospitalization, Other)
  Sender: FDA-Public Use
  Company Number: ES-ABBOTT-08P-144-0451865-00

PATIENT
  Age: 64 Year
  Sex: Female

DRUGS (4)
  1. PHENOFIBRATE [Suspect]
     Indication: HYPERCHOLESTEROLAEMIA
     Dosage: NOT REPORTED
     Dates: start: 19910101
  2. CAPTOPRIL [Concomitant]
     Indication: HYPERTENSION
     Dosage: NOT REPORTED
     Dates: start: 19890101
  3. HYDROCHLOROTHIAZIDE [Concomitant]
     Indication: HYPERTENSION
     Dosage: NOT REPORTED
     Dates: start: 19890601
  4. AMILORIDE HYDROCHLORIDE [Concomitant]
     Indication: HYPERTENSION
     Dosage: NOT REPORTED
     Dates: start: 19890601

REACTIONS (1)
  - LICHENOID KERATOSIS [None]
